FAERS Safety Report 9142741 (Version 1)
Quarter: 2013Q1

REPORT INFORMATION
  Report Type: Spontaneous
  Country: US (occurrence: US)
  Receive Date: 20130306
  Receipt Date: 20130306
  Transmission Date: 20140127
  Serious: No
  Sender: FDA-Public Use
  Company Number: US-ENDO PHARMACEUTICALS INC.-OPER20120428

PATIENT
  Sex: Female

DRUGS (6)
  1. OPANA ER [Suspect]
     Indication: CANCER PAIN
     Route: 048
     Dates: start: 2011, end: 20120320
  2. OPANA ER [Suspect]
     Indication: NEUROPATHY PERIPHERAL
  3. OPANA ER [Suspect]
     Indication: MYOPATHY
  4. OPANA ER [Suspect]
     Indication: FIBROMYALGIA
  5. OPANA ER [Suspect]
     Indication: INTERVERTEBRAL DISC DEGENERATION
  6. OPANA [Suspect]
     Indication: BREAKTHROUGH PAIN
     Route: 048
     Dates: start: 2011, end: 20120320

REACTIONS (1)
  - No adverse event [Unknown]
